FAERS Safety Report 9393154 (Version 1)
Quarter: 2013Q3

REPORT INFORMATION
  Report Type: Spontaneous
  Country: DK (occurrence: IT)
  Receive Date: 20130710
  Receipt Date: 20130710
  Transmission Date: 20140515
  Serious: Yes (Life-Threatening)
  Sender: FDA-Public Use
  Company Number: IT-FRI-1000046534

PATIENT
  Age: 79 Year
  Sex: Female

DRUGS (5)
  1. CITALOPRAM [Suspect]
     Indication: SUICIDE ATTEMPT
     Dosage: OVERDOSE: 420 MG
     Route: 048
     Dates: start: 20130623, end: 20130623
  2. IBUPROFEN [Suspect]
     Indication: SUICIDE ATTEMPT
     Dosage: OVERDOSE: 4800 MG
     Route: 048
     Dates: start: 20130623, end: 20130623
  3. DIAZEPAM [Suspect]
     Indication: SUICIDE ATTEMPT
     Dosage: OVERDOSE: 150 MG
     Route: 048
     Dates: start: 20130623, end: 20130623
  4. LEXOTAN [Suspect]
     Indication: SUICIDE ATTEMPT
     Dosage: OVERDOSE: 7 UNITS
     Route: 048
     Dates: start: 20130623, end: 20130623
  5. TAVOR [Suspect]
     Indication: SUICIDE ATTEMPT
     Dosage: OVERDOSE: 20 UNITS (= 50 MG)
     Route: 048
     Dates: start: 20130623, end: 20130623

REACTIONS (5)
  - Suicide attempt [Recovering/Resolving]
  - Coma [Recovering/Resolving]
  - Electrocardiogram QT prolonged [Recovering/Resolving]
  - Sopor [Recovering/Resolving]
  - Intentional overdose [Recovering/Resolving]
